FAERS Safety Report 25478226 (Version 1)
Quarter: 2025Q2

REPORT INFORMATION
  Report Type: Spontaneous
  Country: US (occurrence: None)
  Receive Date: 20250625
  Receipt Date: 20250625
  Transmission Date: 20250717
  Serious: Yes (Hospitalization)
  Sender: FDA-CTU
  Company Number: None

PATIENT
  Age: 74 Year
  Sex: Male
  Weight: 96.6 kg

DRUGS (2)
  1. CARBOPLATIN [Suspect]
     Active Substance: CARBOPLATIN
     Dates: end: 20220914
  2. TAXOL [Suspect]
     Active Substance: PACLITAXEL
     Dates: end: 20220914

REACTIONS (5)
  - Nausea [None]
  - Vomiting [None]
  - Hyperglycaemia [None]
  - Suicidal ideation [None]
  - Gastrooesophageal cancer [None]

NARRATIVE: CASE EVENT DATE: 20221220
